FAERS Safety Report 6484101-2 (Version None)
Quarter: 2009Q4

REPORT INFORMATION
  Report Type: 
  Country: None (occurrence: None)
  Receive Date: 20091208
  Receipt Date: 20091208
  Transmission Date: 20100525
  Serious: No
  Sender: FDA-Public Use
  Company Number: None

PATIENT
  Age: 72 Year
  Sex: Female
  Weight: 107.9561 kg

DRUGS (1)
  1. LEVAQUIN [Suspect]

REACTIONS (4)
  - ABASIA [None]
  - ARTHROPATHY [None]
  - PAIN [None]
  - TENDON DISORDER [None]
